FAERS Safety Report 7608243-0 (Version None)
Quarter: 2011Q3

REPORT INFORMATION
  Report Type: 
  Country: None (occurrence: None)
  Receive Date: 20110706
  Receipt Date: 20110628
  Transmission Date: 20111222
  Serious: Yes (Life-Threatening, Other)
  Sender: FDA-Public Use
  Company Number: 2010JP001120

PATIENT
  Sex: Male
  Weight: 20 kg

DRUGS (49)
  1. CYTARABINE [Concomitant]
  2. PHYSIO (CALCIUM GLUCONATE, GLUCOSE, MAGNESIUM CHLORIDE ANHYDROUS, POTA [Concomitant]
  3. FRAGMIN [Concomitant]
  4. PN TWIN (AMINO ACIDS NOS, CARBOHYDRATES NOS, ELECTROLYTES NOS) [Concomitant]
  5. VITAJECT (CYANOCOBALAMIN, PYRIDOXINE HYDROCHLORIDE, THIAMINE HYDROCHLO [Concomitant]
  6. FENTANYL CITRATE [Concomitant]
  7. FOSCAVIR [Concomitant]
  8. DEZOLAM (EITZOLAM) [Concomitant]
  9. ELENTAL-P (NUTRIENTS NOS) [Concomitant]
  10. CYCLOPHOSPHAMIDE [Concomitant]
  11. SOLU-MEDROL [Concomitant]
  12. VENOGLOBULIN-I [Concomitant]
  13. FAMOTIDINE [Concomitant]
  14. SOLU-CORTEF [Concomitant]
  15. GANCICLOVIR SODIUM [Concomitant]
  16. KETALAR [Concomitant]
  17. BIO THREE (CLOSTRIDIUM BUTYRICUM, LACTOBACILLUS, ACIDOPHILUS, SACCHARO [Concomitant]
  18. DEPAKENE [Concomitant]
  19. PROGRAF [Suspect]
     Indication: BONE MARROW TRANSPLANT
     Dates: start: 20040515
  20. PENTAZOCINE LACTATE [Concomitant]
  21. ZOVIRAX [Concomitant]
  22. VIDARABINE [Concomitant]
  23. ATROPINE [Concomitant]
  24. MINERALIN (COPPER SULFATE, FERRIC CHLORIDE, MANGANESE CHLORIDE, POTASS [Concomitant]
  25. VITAMEDIN (CYANOCOBALAMIN, PYRIDOXINE HYDROCHLORIDE, THIAMINE HYDROCHL [Concomitant]
  26. FUNGUARD (MICAFUNGIN) [Concomitant]
  27. SANDOSTATIN [Concomitant]
  28. MIRACLID (ULINASTATIN) [Concomitant]
  29. PERDIPINE (NICARDIPINE) [Concomitant]
  30. INTRALIPOS (GLYCEINE MAX SEED OIL) [Concomitant]
  31. TATHION (GLUTATHIONE) [Concomitant]
  32. FUTHAN (NAFAMOSTATE MESILATE) [Concomitant]
  33. ALBUMIN (HUMAN) [Concomitant]
  34. MORPHINE [Concomitant]
  35. KEITEN (CEFPIROME SULFATE) [Concomitant]
  36. LOPERAMIDE HCL [Concomitant]
  37. URSO 250 [Concomitant]
  38. SULFASALAZINE [Concomitant]
  39. METHOTREXATE [Concomitant]
  40. NEUTROGIN (LENOGRASTIM) [Concomitant]
  41. STRONG NEO-MINOPHAGEN C (AMINOACETIC ACID, CYSTEINE, GLYCYRRHIZIC ACID [Concomitant]
  42. MIDAZOLAM HCL [Concomitant]
  43. CLINDAMYCIN HCL [Concomitant]
  44. DIFLUCAN [Concomitant]
  45. ATARAX [Concomitant]
  46. HAPTOGLOBINS (HAPTOGLOBINS) [Concomitant]
  47. MEROPENEN (MEROPENEM TRIHYDRATE) [Concomitant]
  48. SEPAMIT-R (NIFEDIPINE) [Concomitant]
  49. IBUPROFEN [Concomitant]

REACTIONS (18)
  - EPSTEIN-BARR VIRUS ASSOCIATED LYMPHOPROLIFERATIVE DISORDER [None]
  - PYREXIA [None]
  - MYOCLONUS [None]
  - DRUG INEFFECTIVE [None]
  - URINARY INCONTINENCE [None]
  - ALTERED STATE OF CONSCIOUSNESS [None]
  - ACUTE GRAFT VERSUS HOST DISEASE IN SKIN [None]
  - POLLAKIURIA [None]
  - QUADRIPLEGIA [None]
  - HEPATIC FUNCTION ABNORMAL [None]
  - CONVULSION [None]
  - MUSCULAR WEAKNESS [None]
  - DYSKINESIA [None]
  - APHASIA [None]
  - ASTHENIA [None]
  - PULMONARY ALVEOLAR HAEMORRHAGE [None]
  - ACUTE GRAFT VERSUS HOST DISEASE IN INTESTINE [None]
  - DYSPHAGIA [None]
